FAERS Safety Report 4944782-9 (Version None)
Quarter: 2006Q1

REPORT INFORMATION
  Report Type: 
  Country: None (occurrence: None)
  Receive Date: 20060118
  Receipt Date: 20050711
  Transmission Date: 20060701
  Serious: Yes (Death)
  Sender: FDA-Public Use
  Company Number: US-JNJFOC-20050607324

PATIENT
  Age: 82 Year
  Sex: Female
  Weight: 54.8852 kg

DRUGS (8)
  1. DOXIL [Suspect]
     Indication: CHRONIC LYMPHOCYTIC LEUKAEMIA
     Dosage: 40 MG; 20 MG, 1 IN 1 WEEK :  INTRAVENOUS
     Route: 042
     Dates: start: 20040408, end: 20040408
  2. DOXIL [Suspect]
     Indication: MULTIPLE MYELOMA
     Dosage: 40 MG; 20 MG, 1 IN 1 WEEK :  INTRAVENOUS
     Route: 042
     Dates: start: 20040408, end: 20040408
  3. DOXIL [Suspect]
     Indication: CHRONIC LYMPHOCYTIC LEUKAEMIA
     Dosage: 40 MG; 20 MG, 1 IN 1 WEEK :  INTRAVENOUS
     Route: 042
     Dates: start: 20040401, end: 20040920
  4. DOXIL [Suspect]
     Indication: MULTIPLE MYELOMA
     Dosage: 40 MG; 20 MG, 1 IN 1 WEEK :  INTRAVENOUS
     Route: 042
     Dates: start: 20040401, end: 20040920
  5. COUMADIN [Concomitant]
  6. ASPIRIN [Concomitant]
  7. SENNA (SENNA) [Concomitant]
  8. THALIDOMIDE (THALIDOMIDE) [Concomitant]

REACTIONS (2)
  - MALIGNANT NEOPLASM PROGRESSION [None]
  - MULTIPLE MYELOMA [None]
